FAERS Safety Report 17462278 (Version 1)
Quarter: 2020Q1

REPORT INFORMATION
  Report Type: Spontaneous
  Country: US (occurrence: US)
  Receive Date: 20200226
  Receipt Date: 20200226
  Transmission Date: 20200409
  Serious: No
  Sender: FDA-Public Use
  Company Number: US-JNJFOC-20200209716

PATIENT
  Age: 5 Year
  Sex: Female

DRUGS (1)
  1. CHILDRENS MOTRIN [Suspect]
     Active Substance: IBUPROFEN
     Indication: PYREXIA
     Dosage: PATIENT GIVEN 7.5ML IBUPROFEN THEN PATIENT HERSELF TOOK ANOTHER 7.5ML AND THEN ANOTHER 12.5ML
     Route: 065
     Dates: start: 20200205

REACTIONS (1)
  - Extra dose administered [Unknown]

NARRATIVE: CASE EVENT DATE: 20200205
